FAERS Safety Report 10169511 (Version 1)
Quarter: 2014Q2

REPORT INFORMATION
  Report Type: Spontaneous
  Country: US (occurrence: US)
  Receive Date: 20140513
  Receipt Date: 20140513
  Transmission Date: 20141212
  Serious: Yes (Hospitalization)
  Sender: FDA-Public Use
  Company Number: US-ASTRAZENECA-2014SE30780

PATIENT
  Age: 70 Year
  Sex: Female

DRUGS (2)
  1. METOPROLOL [Suspect]
     Route: 048
  2. BRILINTA [Suspect]
     Route: 048

REACTIONS (1)
  - Rhythm idioventricular [Recovered/Resolved]
